FAERS Safety Report 11716935 (Version 2)
Quarter: 2015Q4

REPORT INFORMATION
  Report Type: Report from Study
  Country: MX (occurrence: MX)
  Receive Date: 20151109
  Receipt Date: 20151224
  Transmission Date: 20160304
  Serious: Yes (Other)
  Sender: FDA-Public Use
  Company Number: MX-BRISTOL-MYERS SQUIBB COMPANY-BMS-2015-074930

PATIENT
  Age: 59 Year
  Sex: Female
  Weight: 64 kg

DRUGS (1)
  1. IPILIMUMAB [Suspect]
     Active Substance: IPILIMUMAB
     Indication: MALIGNANT MELANOMA
     Dosage: 4 DF, Q3WK
     Route: 065
     Dates: start: 20151005, end: 20151022

REACTIONS (6)
  - Vomiting [Unknown]
  - Rash [Unknown]
  - Dehydration [Unknown]
  - Headache [Unknown]
  - Dry skin [Unknown]
  - Haematemesis [Unknown]

NARRATIVE: CASE EVENT DATE: 20151005
